FAERS Safety Report 11938640 (Version 2)
Quarter: 2016Q1

REPORT INFORMATION
  Report Type: Report from Study
  Country: US (occurrence: US)
  Receive Date: 20160122
  Receipt Date: 20160225
  Transmission Date: 20160526
  Serious: Yes (Other)
  Sender: FDA-Public Use
  Company Number: US-MYLANLABS-2016M1002552

PATIENT
  Age: 35 Year
  Sex: Female

DRUGS (2)
  1. AMNESTEEM [Suspect]
     Active Substance: ISOTRETINOIN
     Dosage: 10 MG, Q3D
     Route: 065
     Dates: start: 20151030, end: 20151220
  2. ORAL CONTRACEPTIVE NOS [Concomitant]
     Active Substance: UNSPECIFIED INGREDIENT
     Dosage: UNK
     Route: 065

REACTIONS (1)
  - Exposure during pregnancy [Not Recovered/Not Resolved]

NARRATIVE: CASE EVENT DATE: 20151205
